FAERS Safety Report 11518250 (Version 1)
Quarter: 2015Q3

REPORT INFORMATION
  Report Type: Spontaneous
  Country: US (occurrence: None)
  Receive Date: 20150917
  Receipt Date: 20150917
  Transmission Date: 20151125
  Serious: Yes (Hospitalization, Other)
  Sender: FDA-Public Use
  Company Number: US-MDT-ADR-2015-01801

PATIENT
  Age: 46 Year
  Sex: Male

DRUGS (2)
  1. BACLOFEN INTRATHECAL; UNK [Suspect]
     Active Substance: BACLOFEN
     Indication: PAIN
     Dosage: UNK
  2. UNK [Suspect]
     Active Substance: UNSPECIFIED INGREDIENT
     Dosage: UNK

REACTIONS (2)
  - Pain [None]
  - Infusion site mass [None]
